FAERS Safety Report 24538054 (Version 1)
Quarter: 2024Q4

REPORT INFORMATION
  Report Type: Spontaneous
  Country: HU (occurrence: HU)
  Receive Date: 20241023
  Receipt Date: 20241023
  Transmission Date: 20250114
  Serious: Yes (Other)
  Sender: SANDOZ
  Company Number: HU-002147023-PHHY2019HU131036

PATIENT
  Age: 73 Year
  Sex: Male

DRUGS (4)
  1. ASPIRIN [Suspect]
     Active Substance: ASPIRIN
     Indication: Product used for unknown indication
     Dosage: 100 MG, UNK
     Route: 065
  2. ATORVASTATIN CALCIUM [Suspect]
     Active Substance: ATORVASTATIN CALCIUM
     Indication: Product used for unknown indication
     Dosage: 20 MG, UNK
     Route: 065
  3. METOPROLOL SUCCINATE [Suspect]
     Active Substance: METOPROLOL SUCCINATE
     Indication: Product used for unknown indication
     Dosage: 50 MG, UNK
     Route: 065
  4. PERINDOPRIL [Suspect]
     Active Substance: PERINDOPRIL
     Indication: Product used for unknown indication
     Dosage: 8 MG, UNK
     Route: 065

REACTIONS (12)
  - Breast swelling [Recovered/Resolved]
  - Ejection fraction decreased [Recovered/Resolved]
  - Breast pain [Recovered/Resolved]
  - Coronary artery occlusion [Recovered/Resolved]
  - Breath sounds abnormal [Recovered/Resolved]
  - Troponin increased [Recovered/Resolved]
  - Ventricular fibrillation [Recovered/Resolved]
  - Bundle branch block left [Recovered/Resolved]
  - Coronary artery stenosis [Recovered/Resolved]
  - Lipids increased [Recovered/Resolved]
  - Blood creatine phosphokinase increased [Recovered/Resolved]
  - Altered state of consciousness [Recovered/Resolved]
